FAERS Safety Report 23270354 (Version 2)
Quarter: 2023Q4

REPORT INFORMATION
  Report Type: Spontaneous
  Country: US (occurrence: US)
  Receive Date: 20231207
  Receipt Date: 20231213
  Transmission Date: 20240109
  Serious: Yes (Other)
  Sender: FDA-Public Use
  Company Number: US-BRISTOL-MYERS SQUIBB COMPANY-2023-176669

PATIENT
  Age: 56 Year
  Sex: Female

DRUGS (19)
  1. LENALIDOMIDE [Suspect]
     Active Substance: LENALIDOMIDE
     Indication: Plasma cell myeloma
     Dosage: FREQUENCY - 21?DAY 1-DAY 21 EVERY 28 DAY CYCLE
     Dates: start: 20181012
  2. LENALIDOMIDE [Suspect]
     Active Substance: LENALIDOMIDE
     Dosage: 21-28 DAYS
     Route: 048
     Dates: start: 20190927
  3. ASPIRIN [Concomitant]
     Active Substance: ASPIRIN
  4. ALBUTEROL [Concomitant]
     Active Substance: ALBUTEROL
     Indication: Wheezing
     Dosage: PUFF INHALER INHALE  PUFFS INTO THE LUNGS EVERY 6 HOURS AS NEEDED
  5. ALBUTEROL [Concomitant]
     Active Substance: ALBUTEROL
     Indication: Dyspnoea
  6. CIPROFLOXACIN [Concomitant]
     Active Substance: CIPROFLOXACIN
  7. DECADRON [Concomitant]
     Active Substance: DEXAMETHASONE
     Dosage: TAKE 5 TABLET BY MOUTH TWICE A WEEK?MONDAY/THURSDAY
     Route: 048
  8. DARZALEX [Concomitant]
     Active Substance: DARATUMUMAB
     Dates: start: 20221011
  9. AMARYL [Concomitant]
     Active Substance: GLIMEPIRIDE
     Dosage: TAKE ONE TABELT MY MOUTH EVERY DAY
  10. NORCO [Concomitant]
     Active Substance: ACETAMINOPHEN\HYDROCODONE BITARTRATE
     Indication: Pain
     Dosage: TAKE ONE TABLET BY MOUTH EVERY 6 HRS AS NEEDED FORPAIN  ( 5-325MG PER TABELT)
     Route: 048
  11. GLUCOPHAGE [Concomitant]
     Active Substance: METFORMIN HYDROCHLORIDE
     Dosage: TAKE ONE TABLET BY MOUTH 2 TIMES DAILY
     Route: 048
  12. MICATIN [Concomitant]
     Active Substance: MICONAZOLE NITRATE
     Dosage: APPLY TOPICALLY 2 TIMES DAILY
     Route: 061
  13. ACYCLOVIR [Concomitant]
     Active Substance: ACYCLOVIR
     Dosage: MONDAY TO FRIDAY
  14. BORTEZOMIB [Concomitant]
     Active Substance: BORTEZOMIB
     Dates: start: 20181012
  15. DARATUMUMAB [Concomitant]
     Active Substance: DARATUMUMAB
     Indication: Product used for unknown indication
     Dates: start: 20230306
  16. CARFILZOMIB [Concomitant]
     Active Substance: CARFILZOMIB
     Indication: Product used for unknown indication
     Dates: start: 20230306
  17. DEXAMETHASONE [Concomitant]
     Active Substance: DEXAMETHASONE
     Indication: Product used for unknown indication
     Dates: start: 20230306
  18. ZOLEDRONIC ACID [Concomitant]
     Active Substance: ZOLEDRONIC ACID
     Dosage: CURRENTLY ON MAINTENANCE ( WALK GOOD)
     Dates: start: 20181010, end: 20190220
  19. ZOFRAN [Concomitant]
     Active Substance: ONDANSETRON HYDROCHLORIDE
     Indication: Nausea
     Dosage: TAKE 2 TABLETS BY MOUTH DAILY AS NEEDED
     Route: 048

REACTIONS (11)
  - Muscle spasms [Unknown]
  - Anosmia [Unknown]
  - Diarrhoea [Recovering/Resolving]
  - Arthralgia [Unknown]
  - Palpitations [Unknown]
  - Thrombocytopenia [Unknown]
  - Deep vein thrombosis [Unknown]
  - Back pain [Recovering/Resolving]
  - Osteoarthritis [Unknown]
  - Anaemia [Unknown]
  - Leukopenia [Recovered/Resolved]

NARRATIVE: CASE EVENT DATE: 20210501
